FAERS Safety Report 9847745 (Version 3)
Quarter: 2014Q1

REPORT INFORMATION
  Report Type: Spontaneous
  Country: US (occurrence: US)
  Receive Date: 20140128
  Receipt Date: 20140131
  Transmission Date: 20141002
  Serious: Yes (Other)
  Sender: FDA-Public Use
  Company Number: US-ROCHE-1332409

PATIENT
  Age: 49 Year
  Sex: Female

DRUGS (6)
  1. XELODA [Suspect]
     Indication: BREAST CANCER
     Dosage: 14 DAYS ON THEN 7 DAYS OFF
     Route: 048
     Dates: start: 20130919
  2. XELODA [Suspect]
     Dosage: 4 TABS IN THE AM AND 3 TABS IN THE EVENING
     Route: 048
  3. XELODA [Suspect]
     Dosage: 3 TABLETS TWICE DAILY, 14 DAYS ON THEN 7 DAYS OFF, 2000 MG IN THE MORNING AND 1500 MG IN THE EVENING
     Route: 048
     Dates: start: 20140109, end: 20140125
  4. OXYCODONE [Concomitant]
  5. TYLENOL [Concomitant]
  6. KEPPRA [Concomitant]

REACTIONS (4)
  - Central nervous system lesion [Not Recovered/Not Resolved]
  - Drug ineffective [Unknown]
  - Palmar-plantar erythrodysaesthesia syndrome [Unknown]
  - Extra dose administered [Unknown]
